FAERS Safety Report 14203345 (Version 1)
Quarter: 2017Q4

REPORT INFORMATION
  Report Type: Spontaneous
  Country: DE (occurrence: DE)
  Receive Date: 20171120
  Receipt Date: 20171120
  Transmission Date: 20180321
  Serious: Yes (Other)
  Sender: FDA-Public Use
  Company Number: DE-BIOGEN-2017BI00370616

PATIENT
  Sex: Female
  Weight: 85 kg

DRUGS (1)
  1. PLEGRIDY [Suspect]
     Active Substance: PEGINTERFERON BETA-1A
     Indication: PATERNAL EXPOSURE TIMING UNSPECIFIED
     Route: 065
     Dates: start: 20161207

REACTIONS (2)
  - Paternal exposure before pregnancy [Unknown]
  - Cephalo-pelvic disproportion [Recovered/Resolved]

NARRATIVE: CASE EVENT DATE: 20171017
